FAERS Safety Report 11813771 (Version 1)
Quarter: 2015Q4

REPORT INFORMATION
  Report Type: Spontaneous
  Country: CA (occurrence: CA)
  Receive Date: 20151209
  Receipt Date: 20151209
  Transmission Date: 20160305
  Serious: Yes (Other)
  Sender: FDA-Public Use
  Company Number: CA-TEVA-613871ACC

PATIENT
  Age: 70 Year
  Sex: Female
  Weight: 68.1 kg

DRUGS (3)
  1. IRBESARTAN - TEVA [Suspect]
     Active Substance: IRBESARTAN
     Indication: HYPERTENSION
     Dosage: ONCE
     Route: 048
  2. OSTO-D2 [Concomitant]
  3. APO HYDRO [Concomitant]

REACTIONS (5)
  - Dysphagia [Not Recovered/Not Resolved]
  - Product substitution issue [Not Recovered/Not Resolved]
  - Dry mouth [Not Recovered/Not Resolved]
  - Lip swelling [Not Recovered/Not Resolved]
  - Oral discomfort [Not Recovered/Not Resolved]
